FAERS Safety Report 23337315 (Version 1)
Quarter: 2023Q4

REPORT INFORMATION
  Report Type: Spontaneous
  Country: US (occurrence: US)
  Receive Date: 20231226
  Receipt Date: 20231226
  Transmission Date: 20240110
  Serious: No
  Sender: FDA-Public Use
  Company Number: US-BRISTOL-MYERS SQUIBB COMPANY-2023-187237

PATIENT
  Age: 82 Year
  Sex: Female

DRUGS (1)
  1. SOTYKTU [Suspect]
     Active Substance: DEUCRAVACITINIB
     Indication: Product used for unknown indication
     Route: 048

REACTIONS (7)
  - Drug hypersensitivity [Unknown]
  - Vomiting [Unknown]
  - Diarrhoea [Unknown]
  - Chills [Unknown]
  - Pyrexia [Unknown]
  - Dermatitis allergic [Unknown]
  - Pruritus [Unknown]

NARRATIVE: CASE EVENT DATE: 20231206
